FAERS Safety Report 14412890 (Version 1)
Quarter: 2018Q1

REPORT INFORMATION
  Report Type: Spontaneous
  Country: US (occurrence: US)
  Receive Date: 20180119
  Receipt Date: 20180119
  Transmission Date: 20180509
  Serious: Yes (Hospitalization)
  Sender: FDA-Public Use
  Company Number: None

PATIENT
  Age: 90 Year
  Sex: Female
  Weight: 61.3 kg

DRUGS (10)
  1. ASPIRIN. [Suspect]
     Active Substance: ASPIRIN
     Indication: CORONARY ARTERY DISEASE
     Dosage: DATES OF USE - CHRONIC
     Route: 048
  2. COSOPT [Concomitant]
     Active Substance: DORZOLAMIDE HYDROCHLORIDE\TIMOLOL MALEATE
  3. APAP [Concomitant]
     Active Substance: ACETAMINOPHEN
  4. CYANOCOBALAMIN. [Concomitant]
     Active Substance: CYANOCOBALAMIN
  5. WARFARIN [Suspect]
     Active Substance: WARFARIN
     Indication: ATRIAL FIBRILLATION
     Dosage: DATES OF USE - CHRONIC
     Route: 048
  6. LASIX [Concomitant]
     Active Substance: FUROSEMIDE
  7. FOLVITE [Concomitant]
     Active Substance: FOLIC ACID
  8. ZETIA [Concomitant]
     Active Substance: EZETIMIBE
  9. FERROUS SULFATE. [Concomitant]
     Active Substance: FERROUS SULFATE
  10. ATORVASTATIN [Concomitant]
     Active Substance: ATORVASTATIN

REACTIONS (7)
  - Nephrogenic anaemia [None]
  - Gastrointestinal haemorrhage [None]
  - Coagulopathy [None]
  - Anaemia of chronic disease [None]
  - Haemorrhagic anaemia [None]
  - International normalised ratio increased [None]
  - Therapy change [None]

NARRATIVE: CASE EVENT DATE: 20170826
